FAERS Safety Report 16761126 (Version 1)
Quarter: 2019Q3

REPORT INFORMATION
  Report Type: Spontaneous
  Country: US (occurrence: US)
  Receive Date: 20190830
  Receipt Date: 20190830
  Transmission Date: 20191005
  Serious: No
  Sender: FDA-Public Use
  Company Number: US-ANIPHARMA-2018-US-022068

PATIENT
  Sex: Female

DRUGS (7)
  1. ANASTROZOLE. [Suspect]
     Active Substance: ANASTROZOLE
     Indication: PRODUCT USED FOR UNKNOWN INDICATION
     Dates: start: 20030319, end: 20030416
  2. LISINOPRIL. [Suspect]
     Active Substance: LISINOPRIL
  3. LYNPARZA [Suspect]
     Active Substance: OLAPARIB
  4. TAMOXIFEN [Suspect]
     Active Substance: TAMOXIFEN
  5. FASLODEX [Suspect]
     Active Substance: FULVESTRANT
  6. METOPROLOL TARTRATE. [Suspect]
     Active Substance: METOPROLOL TARTRATE
  7. IBRANCE [Suspect]
     Active Substance: PALBOCICLIB

REACTIONS (1)
  - Bone pain [Unknown]
